FAERS Safety Report 8606219-8 (Version None)
Quarter: 2012Q3

REPORT INFORMATION
  Report Type: 
  Country: None (occurrence: None)
  Receive Date: 20120820
  Receipt Date: 20120806
  Transmission Date: 20120928
  Serious: Yes (Other)
  Sender: FDA-Public Use
  Company Number: IT-ROCHE-1101657

PATIENT

DRUGS (2)
  1. OXALIPLATIN [Interacting]
     Indication: COLORECTAL CANCER METASTATIC
  2. CAPECITABINE [Suspect]
     Indication: COLORECTAL CANCER METASTATIC

REACTIONS (3)
  - MYOPATHY TOXIC [None]
  - CARDIOTOXICITY [None]
  - DRUG INTERACTION [None]
